FAERS Safety Report 11311047 (Version 2)
Quarter: 2015Q3

REPORT INFORMATION
  Report Type: Spontaneous
  Country: US (occurrence: US)
  Receive Date: 20150727
  Receipt Date: 20150805
  Transmission Date: 20151125
  Serious: Yes (Death, Hospitalization, Other)
  Sender: FDA-Public Use
  Company Number: US-AMGEN-USASP2015073565

PATIENT
  Age: 77 Year
  Sex: Female
  Weight: 64.4 kg

DRUGS (1)
  1. PROLIA [Suspect]
     Active Substance: DENOSUMAB
     Indication: OSTEOPOROSIS
     Dosage: 60 MG, UNK
     Route: 030
     Dates: start: 20140806

REACTIONS (2)
  - Colon cancer metastatic [Fatal]
  - Confusional state [Fatal]

NARRATIVE: CASE EVENT DATE: 201409
